FAERS Safety Report 5713898-1 (Version None)
Quarter: 2008Q2

REPORT INFORMATION
  Report Type: 
  Country: None (occurrence: None)
  Receive Date: 20080422
  Receipt Date: 20080422
  Transmission Date: 20081010
  Serious: Yes (Hospitalization)
  Sender: FDA-Public Use
  Company Number: None

PATIENT
  Sex: Female
  Weight: 140.1615 kg

DRUGS (17)
  1. GLUCOPHAGE [Suspect]
     Indication: TYPE 2 DIABETES MELLITUS
     Dosage: 1000MG BID PO
     Route: 048
  2. DIOVAN [Concomitant]
  3. MAXZIDE [Concomitant]
  4. LASIX [Concomitant]
  5. ZOCOR [Concomitant]
  6. PREVACID [Concomitant]
  7. REMERON [Concomitant]
  8. NORVASC [Concomitant]
  9. NITROGLYCERIN [Concomitant]
  10. HUMALOG [Concomitant]
  11. LOVENOX [Concomitant]
  12. APAP TAB [Concomitant]
  13. NORVASC [Concomitant]
  14. OMEPRAZOLE [Concomitant]
  15. ATROVENT [Concomitant]
  16. ALBUTEROL [Concomitant]
  17. INSULIN [Concomitant]

REACTIONS (1)
  - BLOOD LACTIC ACID INCREASED [None]
